FAERS Safety Report 13639825 (Version 1)
Quarter: 2017Q2

REPORT INFORMATION
  Report Type: Spontaneous
  Country: US (occurrence: US)
  Receive Date: 20170609
  Receipt Date: 20170609
  Transmission Date: 20170830
  Serious: Yes (Other)
  Sender: FDA-Public Use
  Company Number: US-ROCHE-1091929

PATIENT
  Age: 74 Year
  Sex: Male

DRUGS (7)
  1. ZYPREXA [Suspect]
     Active Substance: OLANZAPINE
     Indication: SOCIAL ANXIETY DISORDER
  2. ZYPREXA [Suspect]
     Active Substance: OLANZAPINE
     Indication: PANIC DISORDER
  3. KLONOPIN [Suspect]
     Active Substance: CLONAZEPAM
     Indication: PANIC DISORDER
  4. OXYCODONE [Concomitant]
     Active Substance: OXYCODONE
  5. KLONOPIN [Suspect]
     Active Substance: CLONAZEPAM
     Indication: SOCIAL ANXIETY DISORDER
     Route: 048
  6. NEURONTIN [Concomitant]
     Active Substance: GABAPENTIN
  7. LEVOTHYROXINE. [Concomitant]
     Active Substance: LEVOTHYROXINE

REACTIONS (9)
  - Seizure [Not Recovered/Not Resolved]
  - Somnolence [Not Recovered/Not Resolved]
  - Feeling abnormal [Not Recovered/Not Resolved]
  - Hypothyroidism [Not Recovered/Not Resolved]
  - Drug use disorder [Not Recovered/Not Resolved]
  - Suicidal ideation [Not Recovered/Not Resolved]
  - Weight loss poor [Not Recovered/Not Resolved]
  - Migraine [Not Recovered/Not Resolved]
  - Vitamin B12 deficiency [Not Recovered/Not Resolved]
